FAERS Safety Report 5912181-9 (Version None)
Quarter: 2008Q4

REPORT INFORMATION
  Report Type: 
  Country: None (occurrence: None)
  Receive Date: 20081004
  Receipt Date: 20081004
  Transmission Date: 20090506
  Serious: No
  Sender: FDA-Public Use
  Company Number: None

PATIENT
  Age: 51 Year
  Sex: Female
  Weight: 89.8122 kg

DRUGS (1)
  1. FLOMAX [Suspect]
     Indication: BENIGN PROSTATIC HYPERPLASIA
     Dosage: ONE DAILY, ONE DOSE
     Dates: start: 20080929, end: 20080930

REACTIONS (3)
  - DIZZINESS [None]
  - PRESYNCOPE [None]
  - VISUAL IMPAIRMENT [None]
